FAERS Safety Report 4509779-1 (Version None)
Quarter: 2004Q4

REPORT INFORMATION
  Report Type: 
  Country: None (occurrence: None)
  Receive Date: 20041124
  Receipt Date: 20040310
  Transmission Date: 20050328
  Serious: Yes (Other)
  Sender: FDA-Public Use
  Company Number: US-BRISTOL-MYERS SQUIBB COMPANY-12530663

PATIENT
  Age: 60 Year
  Sex: Female
  Weight: 98 kg

DRUGS (1)
  1. AVALIDE [Suspect]
     Indication: HYPERTENSION
     Dosage: TAKEN 2S TABS DAILY YEARS AGO, IN JAN-2004 SHE REDUCED DOSE TO 1 TAB DAILY
     Route: 048

REACTIONS (2)
  - BLOOD PRESSURE INCREASED [None]
  - FLUID RETENTION [None]
